FAERS Safety Report 23930537 (Version 1)
Quarter: 2024Q2

REPORT INFORMATION
  Report Type: Spontaneous
  Country: US (occurrence: US)
  Receive Date: 20240602
  Receipt Date: 20240602
  Transmission Date: 20240716
  Serious: No
  Sender: FDA-Public Use
  Company Number: US-TEVA-VS-3200238

PATIENT
  Age: 94 Year
  Sex: Male

DRUGS (1)
  1. BETAMETHASONE DIPROPIONATE [Suspect]
     Active Substance: BETAMETHASONE DIPROPIONATE
     Indication: Rash
     Dosage: 0.05% TWICE A DAY (MORNING AND NIGHT)
     Route: 065

REACTIONS (4)
  - Rash [Unknown]
  - Haemorrhage [Unknown]
  - Acne [Unknown]
  - Burning sensation [Unknown]
